FAERS Safety Report 8139084-6 (Version None)
Quarter: 2012Q1

REPORT INFORMATION
  Report Type: 
  Country: None (occurrence: None)
  Receive Date: 20120215
  Receipt Date: 20120209
  Transmission Date: 20120608
  Serious: Yes (Other)
  Sender: FDA-Public Use
  Company Number: US-PFIZER INC-2012036356

PATIENT
  Sex: Female
  Weight: 76.644 kg

DRUGS (16)
  1. LOPRESSOR [Concomitant]
     Dosage: 50 MG, 1X/DAY
  2. VITAMIN D [Concomitant]
     Dosage: 2000 IU, UNK
  3. GLYBURIDE [Concomitant]
     Dosage: 2.5 MG, 2X/DAY
  4. CELEXA [Concomitant]
     Dosage: 20 MG, 1X/DAY
  5. SYNTHROID [Concomitant]
     Dosage: 50 UG, UNK
  6. ZANTAC [Concomitant]
     Dosage: 150 MG, UNK
  7. SODIUM CHLORIDE [Concomitant]
     Dosage: 100 MG, 1X/DAY
  8. LORAZEPAM [Concomitant]
     Dosage: UNK, 2X/DAY
  9. LIPITOR [Suspect]
     Indication: BLOOD CHOLESTEROL INCREASED
     Dosage: 10 MG, 1X/DAY
     Route: 048
     Dates: start: 19970101, end: 20120201
  10. ATORVASTATIN CALCIUM [Suspect]
     Indication: BLOOD CHOLESTEROL INCREASED
     Dosage: 10 MG, 1X/DAY
     Route: 048
     Dates: start: 20120202, end: 20120205
  11. HYDROCHLOROTHIAZIDE [Concomitant]
     Dosage: UNK, 1X/DAY
  12. MAXZIDE [Concomitant]
     Dosage: 37.5/25 MG, UNK
  13. GLUCOPHAGE [Concomitant]
     Dosage: 500 MG, AS NEEDED
  14. VICODIN [Concomitant]
     Dosage: UNK, AS NEEDED
  15. ACETYLSALICYLIC ACID [Concomitant]
     Dosage: UNK
  16. FLOMAX [Concomitant]
     Dosage: UNK

REACTIONS (5)
  - GASTRITIS [None]
  - DIARRHOEA [None]
  - NAUSEA [None]
  - MALAISE [None]
  - VOMITING [None]
